FAERS Safety Report 17822713 (Version 2)
Quarter: 2020Q2

REPORT INFORMATION
  Report Type: Spontaneous
  Country: CH (occurrence: CH)
  Receive Date: 20200526
  Receipt Date: 20200612
  Transmission Date: 20200714
  Serious: Yes (Life-Threatening, Hospitalization)
  Sender: FDA-Public Use
  Company Number: CH-ROCHE-2593844

PATIENT
  Age: 59 Year
  Sex: Female

DRUGS (8)
  1. FRAGMIN [Concomitant]
     Active Substance: DALTEPARIN SODIUM
     Dosage: 7500IE
     Route: 065
     Dates: start: 20200331, end: 20200402
  2. DOXYCYCLINE. [Concomitant]
     Active Substance: DOXYCYCLINE
     Route: 065
     Dates: start: 20200331, end: 20200405
  3. PLAQUENIL [Concomitant]
     Active Substance: HYDROXYCHLOROQUINE SULFATE
     Route: 065
     Dates: start: 20200329, end: 20200401
  4. ACTEMRA [Suspect]
     Active Substance: TOCILIZUMAB
     Indication: COVID-19
     Route: 042
     Dates: start: 20200402, end: 20200403
  5. ACTEMRA [Suspect]
     Active Substance: TOCILIZUMAB
     Indication: SEPSIS
  6. ACTEMRA [Suspect]
     Active Substance: TOCILIZUMAB
     Indication: ACUTE RESPIRATORY DISTRESS SYNDROME
  7. ROCEPHIN [Concomitant]
     Active Substance: CEFTRIAXONE SODIUM
     Route: 065
     Dates: start: 20200331, end: 20200409
  8. TAZOBACTAM [Concomitant]
     Active Substance: TAZOBACTAM
     Route: 065
     Dates: start: 20200412, end: 20200418

REACTIONS (6)
  - Subarachnoid haemorrhage [Unknown]
  - Intentional product use issue [Unknown]
  - Subdural haematoma [Unknown]
  - Off label use [Unknown]
  - Staphylococcal sepsis [Unknown]
  - Oral herpes [Recovering/Resolving]

NARRATIVE: CASE EVENT DATE: 20200416
